FAERS Safety Report 5507502-5 (Version None)
Quarter: 2007Q4

REPORT INFORMATION
  Report Type: 
  Country: None (occurrence: None)
  Receive Date: 20071106
  Receipt Date: 20071025
  Transmission Date: 20080405
  Serious: Yes (Other)
  Sender: FDA-Public Use
  Company Number: US-ELI_LILLY_AND_COMPANY-US200708005349

PATIENT
  Sex: Female

DRUGS (6)
  1. EVISTA [Suspect]
     Indication: OSTEOPOROSIS PROPHYLAXIS
     Dosage: 60 MG, UNK
     Route: 048
     Dates: start: 20020101
  2. MULTI-VITAMIN [Concomitant]
  3. CALCIUM WITH VITAMIN D [Concomitant]
  4. ASPIRIN [Concomitant]
  5. COSOPT [Concomitant]
  6. XALATAN [Concomitant]

REACTIONS (6)
  - ARTHRALGIA [None]
  - BREAST CANCER IN SITU [None]
  - BREAST MICROCALCIFICATION [None]
  - CHRONIC OBSTRUCTIVE PULMONARY DISEASE [None]
  - HERPES ZOSTER [None]
  - HOT FLUSH [None]
